FAERS Safety Report 6617522-5 (Version None)
Quarter: 2010Q1

REPORT INFORMATION
  Report Type: 
  Country: None (occurrence: None)
  Receive Date: 20100308
  Receipt Date: 20100226
  Transmission Date: 20100710
  Serious: Yes (Hospitalization, Other)
  Sender: FDA-Public Use
  Company Number: US-JNJFOC-20060402001

PATIENT
  Sex: Male
  Weight: 158.76 kg

DRUGS (11)
  1. RISPERDAL [Suspect]
     Indication: SCHIZOPHRENIA
  2. RISPERDAL [Suspect]
     Indication: ANXIETY
  3. RISPERDAL [Suspect]
     Indication: MENTAL DISORDER
  4. RISPERDAL CONSTA [Suspect]
     Indication: DRUG USE FOR UNKNOWN INDICATION
     Route: 050
  5. SEROQUEL [Suspect]
     Indication: SCHIZOPHRENIA
  6. ZYPREXA [Suspect]
     Indication: SCHIZOPHRENIA
  7. HALDOL [Concomitant]
  8. ATIVAN [Concomitant]
  9. DEPAKOTE [Concomitant]
  10. ATENOLOL [Concomitant]
  11. COGENTIN [Concomitant]

REACTIONS (1)
  - TYPE 2 DIABETES MELLITUS [None]
